FAERS Safety Report 6612862-8 (Version None)
Quarter: 2010Q1

REPORT INFORMATION
  Report Type: 
  Country: None (occurrence: None)
  Receive Date: 20100303
  Receipt Date: 20100223
  Transmission Date: 20100710
  Serious: Yes (Hospitalization)
  Sender: FDA-Public Use
  Company Number: JP-MERCK-1002USA01166

PATIENT
  Age: 78 Year
  Sex: Male
  Weight: 51 kg

DRUGS (11)
  1. JANUVIA [Suspect]
     Indication: DIABETES MELLITUS
     Route: 048
     Dates: start: 20100105, end: 20100120
  2. NORVASC [Concomitant]
     Indication: HYPERTENSION
     Route: 048
     Dates: start: 20091207
  3. CRAVIT [Concomitant]
     Indication: UPPER RESPIRATORY TRACT INFECTION
     Route: 048
     Dates: start: 20100105, end: 20100109
  4. LENDORMIN [Concomitant]
     Indication: INSOMNIA
     Route: 048
     Dates: start: 20091207
  5. ETHYL ICOSAPENTATE [Concomitant]
     Route: 048
     Dates: start: 20091207
  6. ACTOS [Concomitant]
     Indication: DIABETES MELLITUS
     Route: 048
     Dates: start: 20091124, end: 20100104
  7. GARASONE [Concomitant]
     Indication: ECZEMA
     Route: 061
     Dates: start: 20091109
  8. DEPAS [Concomitant]
     Indication: INSOMNIA
     Route: 048
     Dates: start: 20091124
  9. MICARDIS [Concomitant]
     Route: 048
     Dates: start: 20091207
  10. ALOSITOL [Concomitant]
     Route: 065
     Dates: start: 20091207
  11. COUGH, COLD, AND FLU THERAPIES (UNSPECIFIED) [Concomitant]
     Indication: NASOPHARYNGITIS
     Route: 048
     Dates: start: 20100105, end: 20100106

REACTIONS (1)
  - PANCREATITIS [None]
